FAERS Safety Report 10446671 (Version 1)
Quarter: 2014Q3

REPORT INFORMATION
  Report Type: Not Available
  Country: IN (occurrence: IN)
  Receive Date: 20140911
  Receipt Date: 20140911
  Transmission Date: 20150326
  Serious: No
  Sender: FDA-Public Use
  Company Number: IN-LUPIN PHARMACEUTICALS INC.-2014-01424

PATIENT
  Age: 38 Year
  Sex: Female

DRUGS (1)
  1. AKT-4 [Suspect]
     Active Substance: ETHAMBUTOL HYDROCHLORIDE\ISONIAZID\PYRAZINAMIDE\RIFAMYCIN
     Indication: TUBERCULOSIS
     Dosage: 1 CAPSULE OF RIFAMPICIN (450MG) EMPTY STOMACH, 2 TABLETS OF PYRAZINAMIDE (750 MG EACH) AFTER LUNCH,
     Route: 048
     Dates: start: 20140705

REACTIONS (1)
  - Pruritus generalised [Not Recovered/Not Resolved]

NARRATIVE: CASE EVENT DATE: 20140804
